FAERS Safety Report 17760656 (Version 1)
Quarter: 2020Q2

REPORT INFORMATION
  Report Type: Spontaneous
  Country: ES (occurrence: ES)
  Receive Date: 20200508
  Receipt Date: 20200508
  Transmission Date: 20200714
  Serious: Yes (Other)
  Sender: FDA-Public Use
  Company Number: ES-STRIDES ARCOLAB LIMITED-2020SP005480

PATIENT
  Age: 71 Year
  Sex: Female

DRUGS (12)
  1. PREGABALIN. [Suspect]
     Active Substance: PREGABALIN
     Indication: PRODUCT USED FOR UNKNOWN INDICATION
     Dosage: 75 MILLIGRAM, EVERY 8 HOURS
     Route: 065
  2. ASPIRIN [ACETYLSALICYLIC ACID] [Suspect]
     Active Substance: ASPIRIN
     Indication: PRODUCT USED FOR UNKNOWN INDICATION
     Dosage: 100 MILLIGRAM PER DAY
     Route: 065
  3. BROMAZEPAM [Suspect]
     Active Substance: BROMAZEPAM
     Indication: PRODUCT USED FOR UNKNOWN INDICATION
     Dosage: 3 MILLIGRAM, EVERY 8 HOURS
     Route: 065
  4. SIMVASTATIN. [Suspect]
     Active Substance: SIMVASTATIN
     Indication: PRODUCT USED FOR UNKNOWN INDICATION
     Dosage: 10 MILLIGRAM, AT BED TIME (AT DINNER)
     Route: 065
  5. QUETIAPINE. [Suspect]
     Active Substance: QUETIAPINE
     Dosage: 25 MILLIGRAM, BID (AT BREAKFAST AND DINNER), DOSE REDUCED
     Route: 065
  6. OXCARBAZEPINE. [Suspect]
     Active Substance: OXCARBAZEPINE
     Indication: PRODUCT USED FOR UNKNOWN INDICATION
     Dosage: UNK
     Route: 065
  7. AMLODIPINE [Suspect]
     Active Substance: AMLODIPINE BESYLATE
     Indication: PRODUCT USED FOR UNKNOWN INDICATION
     Dosage: 5 MILLIGRAM, EVERY MORNING (AT BREAKFAST)
     Route: 065
  8. OXCARBAZEPINE. [Suspect]
     Active Substance: OXCARBAZEPINE
     Dosage: 300 MILLIGRAM, EVERY 12 HRS (REINTRODUCED)
     Route: 065
  9. BROMAZEPAM [Suspect]
     Active Substance: BROMAZEPAM
     Dosage: 1.5 MILLIGRAM, BID (DOSE REDUCED) AT BREAKFAST AND DINNER
     Route: 065
  10. QUETIAPINE. [Suspect]
     Active Substance: QUETIAPINE
     Indication: PRODUCT USED FOR UNKNOWN INDICATION
     Dosage: 200 MILLIGRAM, BID (AT BREAKFAST AND DINNER)
     Route: 065
  11. OMEPRAZOLE. [Suspect]
     Active Substance: OMEPRAZOLE
     Indication: PRODUCT USED FOR UNKNOWN INDICATION
     Dosage: 20 MILLIGRAM PER DAY
     Route: 065
  12. LOSARTAN. [Suspect]
     Active Substance: LOSARTAN
     Indication: PRODUCT USED FOR UNKNOWN INDICATION
     Dosage: 100 MILLIGRAM, EVERY MORNING
     Route: 065

REACTIONS (11)
  - Muscle rigidity [Recovered/Resolved]
  - Tremor [Recovered/Resolved]
  - Parkinsonism [Unknown]
  - Anal incontinence [Recovered/Resolved]
  - Gait inability [Recovered/Resolved]
  - Motor dysfunction [Recovered/Resolved]
  - Speech disorder [Unknown]
  - Memory impairment [Unknown]
  - Dependence [Unknown]
  - Insomnia [Unknown]
  - Bradykinesia [Recovered/Resolved]
